FAERS Safety Report 11475165 (Version 2)
Quarter: 2015Q4

REPORT INFORMATION
  Report Type: Spontaneous
  Country: US (occurrence: US)
  Receive Date: 20150909
  Receipt Date: 20151007
  Transmission Date: 20160304
  Serious: No
  Sender: FDA-Public Use
  Company Number: US-AMGEN-USASP2015091415

PATIENT
  Age: 54 Year
  Sex: Female

DRUGS (1)
  1. ENBREL [Suspect]
     Active Substance: ETANERCEPT
     Indication: RHEUMATOID ARTHRITIS
     Dosage: 50 MG, QWK
     Route: 058

REACTIONS (11)
  - Rash generalised [Unknown]
  - Condition aggravated [Unknown]
  - Conjunctivitis [Unknown]
  - Dry eye [Unknown]
  - Depression [Unknown]
  - Pain [Unknown]
  - Peripheral swelling [Unknown]
  - Joint swelling [Unknown]
  - Lymphadenopathy [Unknown]
  - Carpal tunnel syndrome [Unknown]
  - Oropharyngeal pain [Unknown]
